FAERS Safety Report 18345875 (Version 1)
Quarter: 2020Q4

REPORT INFORMATION
  Report Type: Report from Study
  Country: FR (occurrence: FR)
  Receive Date: 20201005
  Receipt Date: 20201005
  Transmission Date: 20210114
  Serious: Yes (Hospitalization)
  Sender: FDA-Public Use
  Company Number: FR-JNJFOC-20200946265

PATIENT

DRUGS (1)
  1. RISPERIDONE. [Suspect]
     Active Substance: RISPERIDONE
     Indication: PRODUCT USED FOR UNKNOWN INDICATION
     Route: 048

REACTIONS (16)
  - Dyskinesia [Unknown]
  - Electrocardiogram QT prolonged [Unknown]
  - Overdose [Unknown]
  - Acute respiratory distress syndrome [Unknown]
  - Circulatory collapse [Unknown]
  - Rhabdomyolysis [Unknown]
  - Vomiting [Unknown]
  - Liver injury [Unknown]
  - Coma [Unknown]
  - Pneumonia aspiration [Unknown]
  - Renal failure [Unknown]
  - Anticholinergic syndrome [Unknown]
  - Mydriasis [Unknown]
  - Suicide attempt [Unknown]
  - Pyramidal tract syndrome [Unknown]
  - Miosis [Unknown]
